FAERS Safety Report 26154296 (Version 2)
Quarter: 2025Q4

REPORT INFORMATION
  Report Type: Spontaneous
  Country: EU (occurrence: EU)
  Receive Date: 20251215
  Receipt Date: 20251215
  Transmission Date: 20260119
  Serious: Yes (Hospitalization)
  Sender: ACCORD
  Company Number: None

PATIENT
  Age: 2 Month
  Sex: Female
  Weight: 2.52 kg

DRUGS (3)
  1. ATROPINE [Suspect]
     Active Substance: ATROPINE
     Indication: Fundoscopy
     Dates: start: 20250909, end: 20250910
  2. CHOLECALCIFEROL [Concomitant]
     Active Substance: CHOLECALCIFEROL
  3. SODIUM [Concomitant]
     Active Substance: SODIUM

REACTIONS (4)
  - Somnolence [Recovered/Resolved]
  - Hypophagia [Recovered/Resolved]
  - Infrequent bowel movements [Recovered/Resolved]
  - Hypotonia [Recovered/Resolved]

NARRATIVE: CASE EVENT DATE: 20250910
